FAERS Safety Report 9348441 (Version 1)
Quarter: 2013Q2

REPORT INFORMATION
  Report Type: Spontaneous
  Country: US (occurrence: US)
  Receive Date: 20130614
  Receipt Date: 20130614
  Transmission Date: 20140414
  Serious: Yes (Other)
  Sender: FDA-Public Use
  Company Number: US-BAYER-2013-072053

PATIENT
  Sex: Female

DRUGS (2)
  1. CIPRO [Suspect]
  2. LYRICA [Suspect]

REACTIONS (1)
  - Clostridium difficile infection [None]
